FAERS Safety Report 11652141 (Version 2)
Quarter: 2016Q1

REPORT INFORMATION
  Report Type: Spontaneous
  Country: US (occurrence: US)
  Receive Date: 20151022
  Receipt Date: 20160114
  Transmission Date: 20160525
  Serious: No
  Sender: FDA-Public Use
  Company Number: US-009507513-1510USA008335

PATIENT

DRUGS (1)
  1. EMEND [Suspect]
     Active Substance: APREPITANT
     Route: 042

REACTIONS (1)
  - Infusion site pain [Not Recovered/Not Resolved]
